FAERS Safety Report 10472568 (Version 1)
Quarter: 2014Q3

REPORT INFORMATION
  Report Type: Spontaneous
  Country: US (occurrence: US)
  Receive Date: 20140924
  Receipt Date: 20140924
  Transmission Date: 20150326
  Serious: No
  Sender: FDA-Public Use
  Company Number: US-PFIZER INC-2014260225

PATIENT
  Age: 82 Year
  Sex: Male
  Weight: 70.3 kg

DRUGS (2)
  1. VASOTEC [Concomitant]
     Active Substance: ENALAPRIL MALEATE
     Indication: HYPERTENSION
     Dosage: 5 MG, DAILY
  2. TOVIAZ [Suspect]
     Active Substance: FESOTERODINE FUMARATE
     Indication: HYPERTONIC BLADDER
     Dosage: 4 MG, DAILY
     Dates: start: 201409

REACTIONS (3)
  - Drug prescribing error [Unknown]
  - Abdominal pain upper [Unknown]
  - Constipation [Unknown]

NARRATIVE: CASE EVENT DATE: 201409
